FAERS Safety Report 11848982 (Version 1)
Quarter: 2015Q4

REPORT INFORMATION
  Report Type: Spontaneous
  Country: RU (occurrence: RU)
  Receive Date: 20151218
  Receipt Date: 20151218
  Transmission Date: 20160305
  Serious: Yes (Hospitalization)
  Sender: FDA-Public Use
  Company Number: PHHY2013RU169062

PATIENT
  Age: 29 Year
  Sex: Female
  Weight: 60 kg

DRUGS (1)
  1. REVOLADE [Suspect]
     Active Substance: ELTROMBOPAG
     Indication: IMMUNE THROMBOCYTOPENIC PURPURA
     Dosage: QD
     Route: 048
     Dates: start: 20130913, end: 201311

REACTIONS (4)
  - Premature separation of placenta [Unknown]
  - Exposure during pregnancy [Unknown]
  - Abortion threatened [Not Recovered/Not Resolved]
  - Amniorrhoea [Unknown]

NARRATIVE: CASE EVENT DATE: 2013
